FAERS Safety Report 9624866 (Version 2)
Quarter: 2013Q4

REPORT INFORMATION
  Report Type: Spontaneous
  Country: US (occurrence: US)
  Receive Date: 20131016
  Receipt Date: 20131025
  Transmission Date: 20140711
  Serious: Yes (Other)
  Sender: FDA-Public Use
  Company Number: US-JNJFOC-20131002035

PATIENT
  Sex: 0

DRUGS (3)
  1. BENADRYL UNSPECIFIED [Suspect]
     Indication: HALLUCINATION
     Dosage: 850 TO 1000 MG
     Route: 065
  2. BENADRYL UNSPECIFIED [Suspect]
     Indication: FEAR
     Dosage: 850 TO 1000 MG
     Route: 065
  3. BENADRYL UNSPECIFIED [Suspect]
     Indication: PARANOIA
     Dosage: 850 TO 1000 MG
     Route: 065

REACTIONS (6)
  - Feeling drunk [Unknown]
  - Mental status changes [Unknown]
  - Intentional drug misuse [Unknown]
  - Intentional overdose [Unknown]
  - Off label use [Unknown]
  - Hallucination [Unknown]
